FAERS Safety Report 20693115 (Version 1)
Quarter: 2022Q2

REPORT INFORMATION
  Report Type: Spontaneous
  Country: US (occurrence: US)
  Receive Date: 20220410
  Receipt Date: 20220410
  Transmission Date: 20220721
  Serious: No
  Sender: FDA-Public Use
  Company Number: US-TEVA-2022-US-2019381

PATIENT

DRUGS (1)
  1. JUNEL FE 1/20 [Suspect]
     Active Substance: ETHINYL ESTRADIOL\NORETHINDRONE ACETATE
     Route: 065

REACTIONS (12)
  - Mood altered [Unknown]
  - Crying [Unknown]
  - Anxiety [Unknown]
  - Feeling of despair [Unknown]
  - Panic attack [Unknown]
  - Abdominal pain [Unknown]
  - Abdominal distension [Unknown]
  - Breast pain [Unknown]
  - Dysmenorrhoea [Unknown]
  - Psychiatric symptom [Unknown]
  - Headache [Unknown]
  - Weight increased [Unknown]
